FAERS Safety Report 12850976 (Version 1)
Quarter: 2016Q4

REPORT INFORMATION
  Report Type: Spontaneous
  Country: BR (occurrence: BR)
  Receive Date: 20161015
  Receipt Date: 20161015
  Transmission Date: 20170207
  Serious: Yes (Other)
  Sender: FDA-Public Use
  Company Number: BR-AMGEN-BRASP2016137223

PATIENT
  Age: 33 Year
  Sex: Male

DRUGS (1)
  1. ENBREL [Suspect]
     Active Substance: ETANERCEPT
     Indication: PSORIATIC ARTHROPATHY
     Dosage: 1X/WEEK
     Route: 065
     Dates: start: 20160914

REACTIONS (5)
  - Haematochezia [Not Recovered/Not Resolved]
  - Mobility decreased [Unknown]
  - Drug effect incomplete [Unknown]
  - Liver disorder [Unknown]
  - Hepatic steatosis [Not Recovered/Not Resolved]
